FAERS Safety Report 20458365 (Version 5)
Quarter: 2025Q2

REPORT INFORMATION
  Report Type: Spontaneous
  Country: IT (occurrence: IT)
  Receive Date: 20220211
  Receipt Date: 20250614
  Transmission Date: 20250716
  Serious: Yes (Other)
  Sender: CELLTRION
  Company Number: IT-CELLTRION INC.-2022IT001271

PATIENT

DRUGS (13)
  1. RITUXIMAB [Suspect]
     Active Substance: RITUXIMAB
     Indication: Anti-platelet antibody
     Dosage: 375 MG/M2, WEEKLY; 375 MILLIGRAM/SQ. METER, QW
     Route: 065
  2. RITUXIMAB [Suspect]
     Active Substance: RITUXIMAB
     Indication: Anti-complement antibody
  3. BUSULFAN [Suspect]
     Active Substance: BUSULFAN
     Indication: Stem cell transplant
     Route: 042
  4. BUSULFAN [Suspect]
     Active Substance: BUSULFAN
     Indication: Allogenic stem cell transplantation
     Route: 042
  5. BUSULFAN [Suspect]
     Active Substance: BUSULFAN
     Route: 042
  6. DEFIBROTIDE [Suspect]
     Active Substance: DEFIBROTIDE (BOVINE)
     Indication: Off label use
     Route: 065
  7. DEFIBROTIDE [Suspect]
     Active Substance: DEFIBROTIDE (BOVINE)
     Indication: Venoocclusive disease
  8. DEFIBROTIDE [Suspect]
     Active Substance: DEFIBROTIDE (BOVINE)
     Indication: Prophylaxis
  9. DEFITELIO [Suspect]
     Active Substance: DEFIBROTIDE SODIUM
     Indication: Prophylaxis
     Route: 065
  10. DEFITELIO [Suspect]
     Active Substance: DEFIBROTIDE SODIUM
     Indication: Venoocclusive disease
  11. ECULIZUMAB [Suspect]
     Active Substance: ECULIZUMAB
     Indication: Atypical haemolytic uraemic syndrome
     Dosage: 300 MG/WEEKLY DOSE) WAS STARTED ON D +40.
  12. SOLIRIS [Suspect]
     Active Substance: ECULIZUMAB
     Indication: Atypical haemolytic uraemic syndrome
     Dosage: 300 MG/ WEEKLY DOSE, STARTED ON DAY +40; 300 MG, QW, STARTED ON DAY +40
     Route: 065
  13. SOLIRIS [Suspect]
     Active Substance: ECULIZUMAB
     Indication: Atypical haemolytic uraemic syndrome
     Dosage: 300 MG/ WEEKLY DOSE, STARTED ON DAY +40
     Route: 065

REACTIONS (10)
  - Atypical haemolytic uraemic syndrome [Recovered/Resolved]
  - Bone marrow failure [Recovered/Resolved]
  - Post procedural haemorrhage [Recovered/Resolved]
  - Venoocclusive liver disease [Unknown]
  - Anaemia [Recovered/Resolved]
  - Pulmonary oedema [Unknown]
  - Thrombocytopenia [Recovered/Resolved]
  - Product administration error [Unknown]
  - Off label use [Unknown]
  - Intentional product use issue [Unknown]
